FAERS Safety Report 13343692 (Version 1)
Quarter: 2017Q1

REPORT INFORMATION
  Report Type: Spontaneous
  Country: US (occurrence: US)
  Receive Date: 20170316
  Receipt Date: 20170316
  Transmission Date: 20170428
  Serious: No
  Sender: FDA-Public Use
  Company Number: US-ELI_LILLY_AND_COMPANY-US201607009473

PATIENT
  Sex: Female
  Weight: 53.52 kg

DRUGS (2)
  1. CYMBALTA [Suspect]
     Active Substance: DULOXETINE HYDROCHLORIDE
     Indication: MAJOR DEPRESSION
     Dosage: 60 MG, QD
     Route: 065
     Dates: start: 2011
  2. CYMBALTA [Suspect]
     Active Substance: DULOXETINE HYDROCHLORIDE
     Dosage: 20 MG, QD
     Route: 065
     Dates: end: 201505

REACTIONS (20)
  - Lethargy [Unknown]
  - Constricted affect [Unknown]
  - Anxiety [Unknown]
  - Confusional state [Unknown]
  - Stress [Unknown]
  - Nightmare [Unknown]
  - Hot flush [Unknown]
  - Dizziness [Unknown]
  - Fatigue [Unknown]
  - Dysphoria [Unknown]
  - Irritability [Unknown]
  - Hyperhidrosis [Unknown]
  - Affect lability [Unknown]
  - Decreased appetite [Unknown]
  - Headache [Unknown]
  - Paraesthesia [Unknown]
  - Feeling abnormal [Unknown]
  - Vertigo [Unknown]
  - Insomnia [Unknown]
  - Drug withdrawal syndrome [Unknown]

NARRATIVE: CASE EVENT DATE: 2014
